FAERS Safety Report 22398824 (Version 2)
Quarter: 2023Q2

REPORT INFORMATION
  Report Type: Report from Study
  Country: CN (occurrence: None)
  Receive Date: 20230602
  Receipt Date: 20230620
  Transmission Date: 20230722
  Serious: Yes (Hospitalization)
  Sender: FDA-Public Use
  Company Number: CN-ROCHE-3357925

PATIENT
  Age: 16 Year
  Sex: Female
  Weight: 29 kg

DRUGS (2)
  1. RISDIPLAM [Suspect]
     Active Substance: RISDIPLAM
     Indication: Spinal muscular atrophy
     Dosage: 60 MG/BOTTLE.
     Route: 048
     Dates: start: 20180628
  2. RISDIPLAM [Suspect]
     Active Substance: RISDIPLAM
     Indication: Spinal muscular atrophy
     Dosage: 60 MG/BOTTLE. ON 22/MAY/2023, THE PATIENT WAS ADMINISTERED LAST DOSE PRIOR TO SAE/AESI.
     Route: 048

REACTIONS (2)
  - Asthma [Not Recovered/Not Resolved]
  - Gastroenteritis [Recovering/Resolving]

NARRATIVE: CASE EVENT DATE: 20230523
